FAERS Safety Report 5537717-1 (Version None)
Quarter: 2007Q4

REPORT INFORMATION
  Report Type: 
  Country: None (occurrence: None)
  Receive Date: 20071207
  Receipt Date: 20071203
  Transmission Date: 20080405
  Serious: Yes (Life-Threatening, Hospitalization, Disabling)
  Sender: FDA-Public Use
  Company Number: US-JNJFOC-20070904798

PATIENT
  Sex: Female
  Weight: 104.33 kg

DRUGS (12)
  1. LEVAQUIN [Suspect]
     Indication: NASOPHARYNGITIS
     Route: 048
  2. LEVAQUIN [Suspect]
     Indication: SINUSITIS
     Route: 048
  3. POTASSIUM CHLORIDE [Concomitant]
     Route: 065
  4. SULFUR LOTION [Concomitant]
     Route: 065
  5. GLYBURIDE [Concomitant]
     Indication: DIABETES MELLITUS
     Route: 048
  6. BETAMETHASONE [Concomitant]
     Indication: RASH
  7. SINGULAIR [Concomitant]
     Indication: ASTHMA
     Route: 048
  8. ZYLET [Concomitant]
     Route: 047
  9. TEGRETOL [Concomitant]
     Indication: CONVULSION
     Route: 048
  10. ZANTAC [Concomitant]
     Indication: GASTRIC DISORDER
     Route: 048
  11. DAPSONE [Concomitant]
     Indication: PRURITUS
     Route: 048
  12. ATARAX [Concomitant]
     Indication: NERVOUSNESS
     Route: 048

REACTIONS (14)
  - ALOPECIA [None]
  - ASTHENIA [None]
  - DYSPNOEA [None]
  - HYPERSENSITIVITY [None]
  - LOCALISED INFECTION [None]
  - OEDEMA PERIPHERAL [None]
  - PSORIASIS [None]
  - RASH GENERALISED [None]
  - RASH PRURITIC [None]
  - SKIN EXFOLIATION [None]
  - SKIN LESION [None]
  - SKIN ODOUR ABNORMAL [None]
  - STAPHYLOCOCCAL SCALDED SKIN SYNDROME [None]
  - SWELLING [None]
